FAERS Safety Report 16856415 (Version 3)
Quarter: 2020Q3

REPORT INFORMATION
  Report Type: Spontaneous
  Country: US (occurrence: US)
  Receive Date: 20190926
  Receipt Date: 20200826
  Transmission Date: 20201102
  Serious: Yes (Other)
  Sender: FDA-Public Use
  Company Number: US-GILEAD-2019-0429606

PATIENT
  Age: 56 Year
  Sex: Male
  Weight: 70.3 kg

DRUGS (59)
  1. KLOR?CON [Concomitant]
     Active Substance: POTASSIUM CHLORIDE
  2. SEVELAMER CARBONATE. [Concomitant]
     Active Substance: SEVELAMER CARBONATE
  3. ENLAP [Concomitant]
  4. SUSTIVA [Concomitant]
     Active Substance: EFAVIRENZ
  5. CALCIUM ACETATE. [Concomitant]
     Active Substance: CALCIUM ACETATE
  6. TRAMADOL. [Concomitant]
     Active Substance: TRAMADOL
  7. METRONIDAZOLE. [Concomitant]
     Active Substance: METRONIDAZOLE
  8. LACTULOSE. [Concomitant]
     Active Substance: LACTULOSE
  9. PREZCOBIX [Concomitant]
     Active Substance: COBICISTAT\DARUNAVIR ETHANOLATE
  10. LISINOPRIL. [Concomitant]
     Active Substance: LISINOPRIL
  11. VITAMIN D [COLECALCIFEROL] [Concomitant]
     Active Substance: CHOLECALCIFEROL
  12. CALCITROL [CALCITRIOL] [Concomitant]
     Active Substance: CALCITRIOL
  13. VITAMIN D2 [Concomitant]
     Active Substance: ERGOCALCIFEROL
  14. ZOLPIDEM [Concomitant]
     Active Substance: ZOLPIDEM TARTRATE
  15. ATORVASTATIN [Concomitant]
     Active Substance: ATORVASTATIN
  16. CEFUROXIME AXETIL. [Concomitant]
     Active Substance: CEFUROXIME AXETIL
  17. ATRIPLA [Suspect]
     Active Substance: EFAVIRENZ\EMTRICITABINE\TENOFOVIR DISOPROXIL FUMARATE
     Indication: HIV INFECTION
     Dosage: UNK
     Route: 048
     Dates: start: 2006
  18. EPIVIR [Concomitant]
     Active Substance: LAMIVUDINE
  19. SODIUM BICARBINOL [Concomitant]
  20. LEVOTHYROXINE. [Concomitant]
     Active Substance: LEVOTHYROXINE
  21. FAMOTIDINE. [Concomitant]
     Active Substance: FAMOTIDINE
  22. FUROSEMIDE. [Concomitant]
     Active Substance: FUROSEMIDE
  23. GENTAMICIN. [Concomitant]
     Active Substance: GENTAMICIN
  24. HYDROXYZINE HCL [Concomitant]
     Active Substance: HYDROXYZINE HYDROCHLORIDE
  25. HECTOROL [Concomitant]
     Active Substance: DOXERCALCIFEROL
  26. ATRIPLA [Suspect]
     Active Substance: EFAVIRENZ\EMTRICITABINE\TENOFOVIR DISOPROXIL FUMARATE
     Dosage: UNK
     Route: 065
     Dates: start: 20081110, end: 200906
  27. TIVICAY [Concomitant]
     Active Substance: DOLUTEGRAVIR SODIUM
  28. ZIAGEN [Concomitant]
     Active Substance: ABACAVIR SULFATE
  29. TRAZODONE [Concomitant]
     Active Substance: TRAZODONE HYDROCHLORIDE
  30. OMEPRAZOLE. [Concomitant]
     Active Substance: OMEPRAZOLE
  31. MUPIROCIN. [Concomitant]
     Active Substance: MUPIROCIN
  32. MAGNESIUM OXIDE. [Concomitant]
     Active Substance: MAGNESIUM OXIDE
  33. DOXYCYCLINE MONOHYDRATE [Concomitant]
     Active Substance: DOXYCYCLINE
  34. ABACAVIR. [Concomitant]
     Active Substance: ABACAVIR
  35. EDURANT [Concomitant]
     Active Substance: RILPIVIRINE HYDROCHLORIDE
  36. POTASSIUM [Concomitant]
     Active Substance: POTASSIUM
  37. RENO [SODIUM BICARBONATE] [Concomitant]
  38. CIPROFLOXACIN. [Concomitant]
     Active Substance: CIPROFLOXACIN
  39. ACETAMINOPHEN;HYDROCODONE [Concomitant]
     Active Substance: ACETAMINOPHEN\HYDROCODONE
  40. HYDROMORPHONE [Concomitant]
     Active Substance: HYDROMORPHONE
  41. NORVASC [Concomitant]
     Active Substance: AMLODIPINE BESYLATE
  42. ZIGAN [Concomitant]
  43. NEPHPLEX RX [Concomitant]
     Active Substance: ASCORBIC ACID\BIOTIN\COBALAMIN\FOLIC ACID\NIACINAMIDE\PANTOTHENIC ACID\PYRIDOXINE HYDROCHLORIDE\RIBOFLAVIN\THIAMINE\ZINC OXIDE
  44. METOPROLOL. [Concomitant]
     Active Substance: METOPROLOL
  45. LEVAQUIN [Concomitant]
     Active Substance: LEVOFLOXACIN
  46. AVELOX [Concomitant]
     Active Substance: MOXIFLOXACIN HYDROCHLORIDE
  47. CALCIUM CARBONATE. [Concomitant]
     Active Substance: CALCIUM CARBONATE
  48. CEPHALEXIN [CEFALEXIN] [Concomitant]
     Active Substance: CEPHALEXIN
  49. FLUTICASONE PROPIONATE. [Concomitant]
     Active Substance: FLUTICASONE PROPIONATE
  50. EPZICOM [Concomitant]
     Active Substance: ABACAVIR SULFATE\LAMIVUDINE
  51. MEGESTROL [Concomitant]
     Active Substance: MEGESTROL
  52. RENVELA [Concomitant]
     Active Substance: SEVELAMER CARBONATE
  53. VELPHORO [Concomitant]
     Active Substance: SUCROFERRIC OXYHYDROXIDE
  54. NAPROXEN. [Concomitant]
     Active Substance: NAPROXEN
  55. AZITHROMYCIN ANHYDROUS. [Concomitant]
     Active Substance: AZITHROMYCIN ANHYDROUS
  56. CODEINE AND GUAIFENESIN [Concomitant]
     Active Substance: CODEINE\GUAIFENESIN
  57. CROMOLYN [CROMOGLICATE SODIUM] [Concomitant]
     Active Substance: CROMOLYN SODIUM
  58. HIBICLENS [Concomitant]
     Active Substance: CHLORHEXIDINE GLUCONATE
  59. LAMIVUDINE. [Concomitant]
     Active Substance: LAMIVUDINE

REACTIONS (16)
  - Spinal compression fracture [Not Recovered/Not Resolved]
  - Quality of life decreased [Not Recovered/Not Resolved]
  - Anxiety [Not Recovered/Not Resolved]
  - Anhedonia [Not Recovered/Not Resolved]
  - Emotional distress [Not Recovered/Not Resolved]
  - Pain [Not Recovered/Not Resolved]
  - Chronic kidney disease [Not Recovered/Not Resolved]
  - Fatigue [Not Recovered/Not Resolved]
  - Impaired work ability [Not Recovered/Not Resolved]
  - Renal failure [Not Recovered/Not Resolved]
  - Mobility decreased [Not Recovered/Not Resolved]
  - Decreased activity [Not Recovered/Not Resolved]
  - End stage renal disease [Unknown]
  - Loss of personal independence in daily activities [Not Recovered/Not Resolved]
  - Fear [Not Recovered/Not Resolved]
  - Economic problem [Not Recovered/Not Resolved]

NARRATIVE: CASE EVENT DATE: 2009
